FAERS Safety Report 24825349 (Version 2)
Quarter: 2025Q1

REPORT INFORMATION
  Report Type: Spontaneous
  Country: US (occurrence: US)
  Receive Date: 20250109
  Receipt Date: 20250120
  Transmission Date: 20250409
  Serious: Yes (Other)
  Sender: AMGEN
  Company Number: US-AMGEN-USASP2025001474

PATIENT
  Age: 17 Year
  Sex: Male

DRUGS (9)
  1. PROCYSBI [Suspect]
     Active Substance: CYSTEAMINE BITARTRATE
     Indication: Cystinosis
     Dosage: 975 MILLIGRAM, Q12H (13 CAPSULES EVERY 12 HOURS) (75 M G CAP)
     Route: 048
     Dates: start: 2014, end: 202411
  2. PROCYSBI [Suspect]
     Active Substance: CYSTEAMINE BITARTRATE
     Dosage: 15 DOSAGE FORM, Q12H (DOSE INCREASE GOING TO 15 CAPSULES)
     Route: 048
     Dates: start: 202412
  3. PREDNISONE [Suspect]
     Active Substance: PREDNISONE
     Indication: Product used for unknown indication
     Route: 065
     Dates: start: 2014, end: 202411
  4. DRISDOL [Concomitant]
     Active Substance: ERGOCALCIFEROL
  5. UCERIS [Concomitant]
     Active Substance: BUDESONIDE
  6. ENVARSUS XR [Concomitant]
     Active Substance: TACROLIMUS
     Dosage: 1 MILLIGRAM, QD (ER 24H)
  7. HYZAAR [Concomitant]
     Active Substance: HYDROCHLOROTHIAZIDE\LOSARTAN POTASSIUM
  8. AMLODIPINE BESYLATE [Concomitant]
     Active Substance: AMLODIPINE BESYLATE
  9. AZASAN [Concomitant]
     Active Substance: AZATHIOPRINE

REACTIONS (2)
  - End stage renal disease [Unknown]
  - Therapy interrupted [Unknown]

NARRATIVE: CASE EVENT DATE: 20241101
